FAERS Safety Report 7302283-7 (Version None)
Quarter: 2011Q1

REPORT INFORMATION
  Report Type: 
  Country: None (occurrence: None)
  Receive Date: 20110218
  Receipt Date: 20110210
  Transmission Date: 20110831
  Serious: Yes (Other)
  Sender: FDA-Public Use
  Company Number: FR-CELGENEUS-056-C5013-11021396

PATIENT
  Sex: Female
  Weight: 73 kg

DRUGS (31)
  1. HYDROCORT [Concomitant]
     Indication: PROPHYLAXIS
     Route: 051
     Dates: start: 20091005, end: 20101206
  2. LYRICA [Concomitant]
     Route: 048
     Dates: start: 20090626, end: 20091124
  3. ASPIRIN [Concomitant]
     Indication: THROMBOSIS PROPHYLAXIS
     Route: 048
     Dates: start: 20090930
  4. AVLOCARDYL [Concomitant]
     Route: 048
     Dates: start: 20100322
  5. LASIX [Concomitant]
     Route: 048
     Dates: start: 20091028, end: 20091228
  6. MYSOLINE [Concomitant]
     Indication: TREMOR
     Route: 048
     Dates: start: 20091116
  7. FORADIL [Concomitant]
     Route: 055
     Dates: start: 20100521, end: 20100920
  8. DEXAMETHASONE [Suspect]
     Indication: MULTIPLE MYELOMA
     Route: 065
     Dates: start: 20090713, end: 20091222
  9. LYTOS [Concomitant]
     Route: 048
     Dates: start: 20090316
  10. FORLAX [Concomitant]
     Indication: CONSTIPATION
     Route: 048
     Dates: start: 20090629
  11. VITAMIN B COMPLEX [Concomitant]
     Route: 048
     Dates: start: 20090730, end: 20091130
  12. MIFLONIL [Concomitant]
     Route: 055
     Dates: start: 20100720, end: 20100920
  13. LASIX [Concomitant]
     Route: 048
     Dates: start: 20100717
  14. OXYCODONE HCL [Concomitant]
     Route: 048
     Dates: start: 20090727, end: 20100418
  15. DAFALGAN [Concomitant]
     Route: 048
     Dates: start: 20100614
  16. CC-5013 [Suspect]
     Indication: MULTIPLE MYELOMA
     Route: 048
     Dates: start: 20090713, end: 20101129
  17. LYRICA [Concomitant]
     Route: 048
     Dates: start: 20091125, end: 20100711
  18. DIFFU K [Concomitant]
     Route: 048
     Dates: start: 20090810
  19. OXYCONTIN [Concomitant]
     Route: 048
     Dates: start: 20090921, end: 20101205
  20. GINKOR [Concomitant]
     Indication: VENOUS INSUFFICIENCY
     Route: 048
     Dates: start: 20090601, end: 20101203
  21. KIOVIG [Concomitant]
     Indication: INFECTION PROPHYLAXIS
     Route: 051
     Dates: start: 20091005, end: 20101206
  22. SPIRIVA [Concomitant]
     Route: 055
     Dates: start: 20100521, end: 20100620
  23. MOPRAL [Concomitant]
     Indication: GASTRITIS PROPHYLAXIS
     Route: 048
     Dates: start: 20100712
  24. NEXIUM [Concomitant]
     Indication: GASTRITIS PROPHYLAXIS
     Route: 048
     Dates: start: 20090626
  25. AVLOCARDYL [Concomitant]
     Indication: ARRHYTHMIA
     Route: 048
     Dates: start: 20090918, end: 20100321
  26. OXYCONTIN [Concomitant]
     Route: 048
     Dates: start: 20101206
  27. LASIX [Concomitant]
     Route: 048
     Dates: start: 20091229, end: 20100711
  28. LYRICA [Concomitant]
     Route: 048
     Dates: start: 20100712
  29. ZOMETA [Concomitant]
     Indication: BONE DISORDER
     Route: 051
     Dates: start: 20090627
  30. POLARAMINE [Concomitant]
     Indication: PROPHYLAXIS
     Route: 051
     Dates: start: 20091005, end: 20101206
  31. CORDARONE [Concomitant]
     Route: 048
     Dates: start: 20091001

REACTIONS (1)
  - MYELODYSPLASTIC SYNDROME [None]
